FAERS Safety Report 12555103 (Version 1)
Quarter: 2016Q3

REPORT INFORMATION
  Report Type: Spontaneous
  Country: US (occurrence: US)
  Receive Date: 20160714
  Receipt Date: 20160714
  Transmission Date: 20161109
  Serious: No
  Sender: FDA-Public Use
  Company Number: US-AUROBINDO-AUR-APL-2015-10603

PATIENT
  Age: 72 Year
  Sex: Female

DRUGS (1)
  1. VALACYCLOVIR [Suspect]
     Active Substance: VALACYCLOVIR HYDROCHLORIDE
     Indication: VIRAL INFECTION
     Dosage: 1 DF, TWO TIMES A DAY
     Route: 048
     Dates: start: 201511, end: 20151109

REACTIONS (8)
  - Clumsiness [Recovered/Resolved]
  - Balance disorder [Recovered/Resolved]
  - Dizziness [Recovered/Resolved]
  - Feeling abnormal [Recovered/Resolved]
  - Malaise [Recovered/Resolved]
  - Product substitution issue [Recovered/Resolved]
  - Gait disturbance [Recovered/Resolved]
  - Headache [Recovered/Resolved]
